FAERS Safety Report 15353007 (Version 2)
Quarter: 2018Q3

REPORT INFORMATION
  Report Type: Spontaneous
  Country: US (occurrence: US)
  Receive Date: 20180905
  Receipt Date: 20180912
  Transmission Date: 20181010
  Serious: Yes (Other)
  Sender: FDA-Public Use
  Company Number: US-JNJFOC-20180840787

PATIENT
  Age: 56 Year
  Sex: Male
  Weight: 90.72 kg

DRUGS (1)
  1. PREZCOBIX [Suspect]
     Active Substance: COBICISTAT\DARUNAVIR ETHANOLATE
     Indication: HIV INFECTION
     Dosage: DOSE WAS 800?150 (UNITS UNSPECIFIED)
     Route: 048
     Dates: start: 201605, end: 2018

REACTIONS (7)
  - Nausea [Recovered/Resolved]
  - Hodgkin^s disease [Recovered/Resolved]
  - Drug dose omission [Unknown]
  - Withdrawal syndrome [Unknown]
  - Vomiting [Recovered/Resolved]
  - Headache [Unknown]
  - Dizziness [Unknown]

NARRATIVE: CASE EVENT DATE: 201612
